FAERS Safety Report 8611498-7 (Version None)
Quarter: 2012Q3

REPORT INFORMATION
  Report Type: 
  Country: None (occurrence: None)
  Receive Date: 20120822
  Receipt Date: 20120814
  Transmission Date: 20120928
  Serious: Yes (Hospitalization, Other)
  Sender: FDA-Public Use
  Company Number: DE-ABBOTT-12P-062-0948559-00

PATIENT
  Sex: Female

DRUGS (3)
  1. PANTOVOIGAR [Concomitant]
     Indication: PRODUCT USED FOR UNKNOWN INDICATION
     Route: 048
  2. HUMIRA [Suspect]
     Indication: CROHN'S DISEASE
     Route: 058
     Dates: start: 20120109, end: 20120601
  3. ANALGETIC DRUG [Concomitant]
     Indication: PRODUCT USED FOR UNKNOWN INDICATION

REACTIONS (4)
  - POSTOPERATIVE ABSCESS [None]
  - INTESTINAL STENOSIS [None]
  - SUTURE RELATED COMPLICATION [None]
  - GASTROINTESTINAL ANASTOMOTIC LEAK [None]
